FAERS Safety Report 6570249-0 (Version None)
Quarter: 2010Q1

REPORT INFORMATION
  Report Type: 
  Country: None (occurrence: None)
  Receive Date: 20100204
  Receipt Date: 20100126
  Transmission Date: 20100710
  Serious: Yes (Death, Hospitalization)
  Sender: FDA-Public Use
  Company Number: SE-SANOFI-AVENTIS-2009SA003017

PATIENT

DRUGS (6)
  1. OXALIPLATIN [Suspect]
     Route: 041
     Dates: start: 20090821, end: 20090821
  2. OXALIPLATIN [Suspect]
     Route: 041
  3. CAPECITABINE [Suspect]
     Route: 048
     Dates: start: 20090821
  4. CAPECITABINE [Suspect]
     Route: 048
  5. BEVACIZUMAB [Suspect]
     Route: 042
     Dates: start: 20090821, end: 20090821
  6. BEVACIZUMAB [Suspect]
     Route: 042
     Dates: start: 20091023, end: 20091023

REACTIONS (12)
  - BLOOD PRESSURE IMMEASURABLE [None]
  - DEHYDRATION [None]
  - DIARRHOEA [None]
  - ELECTROLYTE IMBALANCE [None]
  - FALL [None]
  - FRACTURE [None]
  - GENERAL PHYSICAL HEALTH DETERIORATION [None]
  - HEPATIC STEATOSIS [None]
  - HUMERUS FRACTURE [None]
  - METASTASES TO LIVER [None]
  - METASTASES TO LUNG [None]
  - OESOPHAGITIS [None]
